FAERS Safety Report 4465645-1 (Version None)
Quarter: 2004Q3

REPORT INFORMATION
  Report Type: 
  Country: None (occurrence: None)
  Receive Date: 20040930
  Receipt Date: 20040923
  Transmission Date: 20050211
  Serious: Yes (Hospitalization)
  Sender: FDA-Public Use
  Company Number: DEU-2004-0000996

PATIENT
  Age: 81 Year
  Sex: Female

DRUGS (9)
  1. THEOPHYLLINE [Suspect]
     Indication: BRONCHITIS CHRONIC
     Dosage: 300 MG, BID, ORAL
     Route: 048
     Dates: end: 20040523
  2. FALITHROM ^HEXAL^ (PHENPROCOUMON) TABLET [Suspect]
     Indication: ATRIAL FIBRILLATION
     Dosage: SEE IMAGE
     Route: 048
     Dates: start: 20040430, end: 20040503
  3. FALITHROM ^HEXAL^ (PHENPROCOUMON) TABLET [Suspect]
     Indication: ATRIAL FIBRILLATION
     Dosage: SEE IMAGE
     Route: 048
     Dates: start: 20040503, end: 20040523
  4. ACETYLSALICYLIC ACID (ACETYLSALICYLIC ACID) TABLET [Suspect]
     Indication: THROMBOSIS PROPHYLAXIS
     Dosage: 100 MG, DAILY, ORAL
     Route: 048
     Dates: end: 20040523
  5. VERAPAMIL [Suspect]
     Indication: ATRIAL FIBRILLATION
     Dosage: 40 MG, TID, ORAL
     Route: 048
  6. ACCUPRIL [Concomitant]
  7. ARELIX ^AVENTIS PHARMA^ (PIRETANIDE SODIUM) [Concomitant]
  8. CORANGIN ^NOVARTIS^ [Concomitant]
  9. MOLSIDOMINE (MOLSIDOMINE) [Concomitant]

REACTIONS (6)
  - DRUG INTERACTION [None]
  - EPISTAXIS [None]
  - GASTRITIS EROSIVE [None]
  - GASTROINTESTINAL HAEMORRHAGE [None]
  - HAEMATEMESIS [None]
  - NAUSEA [None]
